FAERS Safety Report 9297692 (Version 1)
Quarter: 2013Q2

REPORT INFORMATION
  Report Type: Report from Study
  Country: BR (occurrence: BR)
  Receive Date: 20130520
  Receipt Date: 20130520
  Transmission Date: 20140414
  Serious: Yes (Hospitalization, Other)
  Sender: FDA-Public Use
  Company Number: PHHY2013BR049428

PATIENT
  Sex: Female
  Weight: 86.2 kg

DRUGS (8)
  1. SANDOSTATIN LAR (PATIENT BASIS) [Suspect]
     Indication: ACROMEGALY
     Dosage: 30 MG, QMO
     Route: 030
     Dates: start: 201206
  2. CARVEDILOL [Concomitant]
     Dosage: 2 DF, DAILY
     Route: 048
  3. ENALAPRIL [Concomitant]
     Indication: BLOOD PRESSURE
     Dosage: 2 DF, DAILY
     Route: 048
  4. PREDNISONE [Concomitant]
     Dosage: 1 DF, DAILY
     Route: 048
     Dates: start: 2012
  5. FERROUS SULFATE [Concomitant]
     Indication: ANAEMIA
     Dosage: 3 DF, DAILY
     Route: 048
     Dates: start: 201205
  6. FOLIC ACID [Concomitant]
     Dosage: 1 DF, DAILY
     Route: 048
  7. IMIPRAMINE [Concomitant]
     Indication: DEPRESSION
     Dosage: 3 DF, UNK
     Route: 048
  8. PACOGESIC [Concomitant]
     Dosage: 1 DF, UNK
     Route: 048

REACTIONS (13)
  - Vaginal haemorrhage [Recovered/Resolved]
  - Polycystic ovaries [Not Recovered/Not Resolved]
  - Diabetes mellitus [Unknown]
  - Headache [Recovered/Resolved]
  - Cough [Recovered/Resolved]
  - Pain [Recovering/Resolving]
  - Dyspnoea [Recovering/Resolving]
  - Abdominal pain [Recovering/Resolving]
  - Insomnia [Recovering/Resolving]
  - Malaise [Not Recovered/Not Resolved]
  - Chest pain [Recovering/Resolving]
  - Retching [Recovering/Resolving]
  - Memory impairment [Not Recovered/Not Resolved]
